FAERS Safety Report 15050071 (Version 1)
Quarter: 2018Q2

REPORT INFORMATION
  Report Type: Spontaneous
  Country: US (occurrence: US)
  Receive Date: 20180601
  Receipt Date: 20180601
  Transmission Date: 20180711
  Serious: Yes (Other)
  Sender: FDA-Public Use
  Company Number: None

PATIENT
  Age: 51 Year
  Sex: Male
  Weight: 70.76 kg

DRUGS (2)
  1. BUPRENORPHINE 15 MCG/HR [Suspect]
     Active Substance: BUPRENORPHINE
     Indication: LUMBAR RADICULOPATHY
     Dosage: APPLY ONE PATCH WEEKLY TRANSDERMAL
     Dates: start: 20180413, end: 20180428
  2. BUPRENORPHINE 15 MCG/HR [Suspect]
     Active Substance: BUPRENORPHINE
     Indication: CHRONIC INFLAMMATORY DEMYELINATING POLYRADICULONEUROPATHY
     Dosage: APPLY ONE PATCH WEEKLY TRANSDERMAL
     Dates: start: 20180413, end: 20180428

REACTIONS (6)
  - Product adhesion issue [None]
  - Product substitution issue [None]
  - Drug ineffective [None]
  - Abdominal discomfort [None]
  - Pruritus [None]
  - Rash [None]

NARRATIVE: CASE EVENT DATE: 20180413
